FAERS Safety Report 7432625-3 (Version None)
Quarter: 2011Q2

REPORT INFORMATION
  Report Type: 
  Country: None (occurrence: None)
  Receive Date: 20110422
  Receipt Date: 20110414
  Transmission Date: 20111010
  Serious: Yes (Hospitalization)
  Sender: FDA-Public Use
  Company Number: ES-ROCHE-621413

PATIENT
  Sex: Female

DRUGS (9)
  1. TOCILIZUMAB [Suspect]
     Route: 042
     Dates: end: 20081001
  2. DMARD [Concomitant]
  3. CORTICOSTEROID NOS [Concomitant]
     Route: 048
  4. METHOTREXATE [Concomitant]
     Route: 048
  5. TOCILIZUMAB [Suspect]
     Dosage: STARTING DOSE: 8 MG/KG TOTAL MONTHLY DOSE: 544 MG.
     Route: 042
     Dates: start: 20060123
  6. TOCILIZUMAB [Suspect]
     Indication: RHEUMATOID ARTHRITIS
     Dosage: PATIENT WAS PREVIOUSLY IN WA18063 STUDY.
     Route: 042
     Dates: start: 20060123, end: 20060320
  7. TOCILIZUMAB [Suspect]
     Route: 042
     Dates: start: 20060503
  8. TOCILIZUMAB [Suspect]
     Route: 042
     Dates: start: 20081127
  9. TOCILIZUMAB [Suspect]
     Route: 042
     Dates: end: 20060409

REACTIONS (1)
  - TONGUE NEOPLASM MALIGNANT STAGE UNSPECIFIED [None]
